FAERS Safety Report 6763143-3 (Version None)
Quarter: 2010Q2

REPORT INFORMATION
  Report Type: 
  Country: None (occurrence: None)
  Receive Date: 20100608
  Receipt Date: 20100608
  Transmission Date: 20101027
  Serious: No
  Sender: FDA-Public Use
  Company Number: None

PATIENT
  Age: 35 Year
  Sex: Male
  Weight: 82 kg

DRUGS (3)
  1. TRAMADOL HCL [Suspect]
     Indication: PAIN
     Dosage: 50 MG QID PO
     Route: 048
     Dates: start: 20091230
  2. AMITRIPTYLINE HCL [Suspect]
     Indication: DEPRESSION
     Dosage: 200 MG HS PO
     Route: 048
     Dates: start: 20081126
  3. AMITRIPTYLINE HCL [Suspect]
     Indication: SLEEP DISORDER
     Dosage: 200 MG HS PO
     Route: 048
     Dates: start: 20081126

REACTIONS (6)
  - CONFUSIONAL STATE [None]
  - CONTUSION [None]
  - FALL [None]
  - GRAND MAL CONVULSION [None]
  - INCORRECT DOSE ADMINISTERED [None]
  - PNEUMONIA ASPIRATION [None]
